FAERS Safety Report 9066767 (Version 1)
Quarter: 2013Q1

REPORT INFORMATION
  Report Type: Spontaneous
  Country: US (occurrence: US)
  Receive Date: 20130214
  Receipt Date: 20130214
  Transmission Date: 20140127
  Serious: Yes (Death)
  Sender: FDA-Public Use
  Company Number: US-GLAXOSMITHKLINE-A1011954A

PATIENT
  Age: 61 None
  Sex: Female

DRUGS (4)
  1. FLOLAN [Suspect]
     Indication: PRODUCT USED FOR UNKNOWN INDICATION
     Dosage: 8NGKM CONTINUOUS
     Route: 065
     Dates: start: 20130125
  2. LASIX [Concomitant]
  3. LETAIRIS [Concomitant]
  4. ADCIRCA [Concomitant]

REACTIONS (1)
  - Death [Fatal]
